FAERS Safety Report 25524202 (Version 2)
Quarter: 2025Q3

REPORT INFORMATION
  Report Type: Spontaneous
  Country: US (occurrence: US)
  Receive Date: 20250707
  Receipt Date: 20250708
  Transmission Date: 20251020
  Serious: Yes (Other)
  Sender: PFIZER
  Company Number: US-MLMSERVICE-20250623-PI552443-00175-1

PATIENT
  Age: 8 Week
  Sex: Male

DRUGS (4)
  1. HEPARIN SODIUM [Suspect]
     Active Substance: HEPARIN SODIUM
  2. NITRIC OXIDE [Concomitant]
     Active Substance: NITRIC OXIDE
     Indication: Hyperleukocytosis
     Route: 055
  3. SILDENAFIL [Concomitant]
     Active Substance: SILDENAFIL
     Indication: Renovascular hypertension
  4. TREPROSTINIL [Concomitant]
     Active Substance: TREPROSTINIL
     Indication: Renovascular hypertension

REACTIONS (3)
  - Multiple organ dysfunction syndrome [Unknown]
  - Heparin-induced thrombocytopenia [Unknown]
  - Aortic thrombosis [Unknown]
